FAERS Safety Report 23003527 (Version 3)
Quarter: 2024Q2

REPORT INFORMATION
  Report Type: Spontaneous
  Country: US (occurrence: US)
  Receive Date: 20230928
  Receipt Date: 20240529
  Transmission Date: 20240715
  Serious: No
  Sender: FDA-Public Use
  Company Number: US-THERATECHNOLOGIES INC.-2023-THE-TES-000371

PATIENT

DRUGS (1)
  1. EGRIFTA SV [Suspect]
     Active Substance: TESAMORELIN ACETATE
     Indication: Lipodystrophy acquired
     Dosage: 1.4 MG, QD (0.35 ML OF RECONSTITUTED SOLUTION)
     Route: 058
     Dates: start: 20230907, end: 20240422

REACTIONS (9)
  - Hyperaesthesia teeth [Not Recovered/Not Resolved]
  - Injection site discomfort [Recovered/Resolved]
  - Wrong technique in product usage process [Recovered/Resolved]
  - Haemorrhage [Recovered/Resolved]
  - Prostatomegaly [Not Recovered/Not Resolved]
  - Prostatic mass [Not Recovered/Not Resolved]
  - Injection site pain [Recovered/Resolved]
  - Therapeutic product effect incomplete [Not Recovered/Not Resolved]
  - Drug ineffective [Not Recovered/Not Resolved]

NARRATIVE: CASE EVENT DATE: 20230901
